FAERS Safety Report 5343202-2 (Version None)
Quarter: 2007Q2

REPORT INFORMATION
  Report Type: 
  Country: None (occurrence: None)
  Receive Date: 20070416
  Receipt Date: 20070123
  Transmission Date: 20071010
  Serious: Yes (Hospitalization, Disabling)
  Sender: FDA-Public Use
  Company Number: SP01086

PATIENT
  Age: 63 Year
  Sex: Male
  Weight: 102.9665 kg

DRUGS (4)
  1. OSMOPREP [Suspect]
     Indication: COLONOSCOPY
     Dosage: ORAL
     Route: 048
     Dates: start: 20061119, end: 20061119
  2. VASOTEC [Concomitant]
  3. LIPITOR [Concomitant]
  4. DILACOR XR [Concomitant]

REACTIONS (1)
  - ABDOMINAL DISTENSION [None]
